FAERS Safety Report 6306022-8 (Version None)
Quarter: 2009Q3

REPORT INFORMATION
  Report Type: 
  Country: None (occurrence: None)
  Receive Date: 20090810
  Receipt Date: 20090810
  Transmission Date: 20100115
  Serious: Yes (Death)
  Sender: FDA-Public Use
  Company Number: None

PATIENT
  Sex: Male

DRUGS (6)
  1. REVLIMID [Suspect]
     Indication: MULTIPLE MYELOMA
     Dosage: REVLIMID 5MG DAILY ORAL
     Route: 048
     Dates: start: 20080909
  2. FAMOTIDINE [Concomitant]
  3. METOCLOPRAMIDE [Concomitant]
  4. FUROSEMIDE [Concomitant]
  5. MEGESTROL ACETATE [Concomitant]
  6. ACETAMINOPHEN [Concomitant]

REACTIONS (4)
  - ARTERIOVENOUS GRAFT THROMBOSIS [None]
  - ASPIRATION [None]
  - RESPIRATORY DISTRESS [None]
  - UNRESPONSIVE TO STIMULI [None]
